FAERS Safety Report 14793819 (Version 1)
Quarter: 2018Q2

REPORT INFORMATION
  Report Type: Spontaneous
  Country: US (occurrence: US)
  Receive Date: 20180423
  Receipt Date: 20180423
  Transmission Date: 20180711
  Serious: No
  Sender: FDA-Public Use
  Company Number: US-GLAXOSMITHKLINE-US2018064727

PATIENT
  Age: 64 Year
  Sex: Male

DRUGS (1)
  1. VOLTAREN [Suspect]
     Active Substance: DICLOFENAC SODIUM
     Indication: SKIN EXFOLIATION
     Dosage: UNK
     Route: 061

REACTIONS (3)
  - Therapeutic response unexpected [Recovering/Resolving]
  - Product use in unapproved indication [Unknown]
  - Product administered at inappropriate site [Unknown]
